FAERS Safety Report 4317631-X (Version None)
Quarter: 2004Q1

REPORT INFORMATION
  Report Type: 
  Country: None (occurrence: None)
  Receive Date: 20040315
  Receipt Date: 20030408
  Transmission Date: 20041129
  Serious: Yes (Hospitalization)
  Sender: FDA-Public Use
  Company Number: US-GLAXOSMITHKLINE-A0404034A

PATIENT
  Age: 70 Year
  Sex: Female
  Weight: 113.6 kg

DRUGS (13)
  1. LOTRONEX [Suspect]
     Indication: IRRITABLE BOWEL SYNDROME
     Dosage: 1MG TWICE PER DAY
     Route: 048
  2. HUMULIN [Concomitant]
  3. LIPITOR [Concomitant]
  4. AVANDIA [Concomitant]
  5. ISMO [Concomitant]
     Dosage: 20MG TWICE PER DAY
  6. METOPROLOL [Concomitant]
     Dosage: 2.5MG TWICE PER DAY
  7. ASPIRIN [Concomitant]
  8. MAG-OX [Concomitant]
  9. PREVACID [Concomitant]
  10. PEPCID [Concomitant]
     Dosage: 20MG TWICE PER DAY
  11. NORVASC [Concomitant]
  12. CELEBREX [Concomitant]
     Dosage: 200MG TWICE PER DAY
  13. BUMEX [Concomitant]

REACTIONS (18)
  - ABDOMINAL PAIN [None]
  - ANAEMIA [None]
  - ARTERIAL INSUFFICIENCY [None]
  - CONSTIPATION [None]
  - DIABETIC ENTEROPATHY [None]
  - DIARRHOEA [None]
  - DYSGEUSIA [None]
  - DYSPNOEA [None]
  - GASTRIC ULCER [None]
  - GASTRITIS [None]
  - GASTROENTERITIS [None]
  - HAEMORRHOIDS [None]
  - IRRITABLE BOWEL SYNDROME [None]
  - MALAISE [None]
  - NAUSEA [None]
  - OEDEMA PERIPHERAL [None]
  - POSTOPERATIVE ADHESION [None]
  - VOMITING [None]
